FAERS Safety Report 13344188 (Version 1)
Quarter: 2017Q1

REPORT INFORMATION
  Report Type: Spontaneous
  Country: US (occurrence: US)
  Receive Date: 20170316
  Receipt Date: 20170316
  Transmission Date: 20170428
  Serious: No
  Sender: FDA-Public Use
  Company Number: US-ENDO PHARMACEUTICALS INC-2017-000987

PATIENT

DRUGS (1)
  1. AVEED [Suspect]
     Active Substance: TESTOSTERONE UNDECANOATE
     Indication: TESTICULAR FAILURE
     Dosage: 750 MG, ONCE EVERY 10WK
     Route: 030
     Dates: start: 20160928

REACTIONS (3)
  - Mood swings [Unknown]
  - Crying [Unknown]
  - Anxiety [Unknown]

NARRATIVE: CASE EVENT DATE: 20170117
